FAERS Safety Report 24465987 (Version 1)
Quarter: 2024Q4

REPORT INFORMATION
  Report Type: Spontaneous
  Country: US (occurrence: US)
  Receive Date: 20241018
  Receipt Date: 20241018
  Transmission Date: 20250115
  Serious: No
  Sender: ROCHE
  Company Number: US-ROCHE-3529881

PATIENT
  Age: 90 Year
  Sex: Male
  Weight: 100.7 kg

DRUGS (13)
  1. XOLAIR [Suspect]
     Active Substance: OMALIZUMAB
     Indication: Urticaria
     Dosage: 2 INJECTIONS (150MG PER SHOT); ONE IN EACH ARM IN ^HANGY-DOWN AREA^
     Route: 058
     Dates: start: 20240123, end: 20240123
  2. XOLAIR [Suspect]
     Active Substance: OMALIZUMAB
  3. FIASP [Concomitant]
     Active Substance: INSULIN ASPART
     Indication: Diabetes mellitus
     Route: 058
  4. LEVEMIR [Concomitant]
     Active Substance: INSULIN DETEMIR
     Indication: Diabetes mellitus
  5. SUCRALFATE [Concomitant]
     Active Substance: SUCRALFATE
     Indication: Gastrooesophageal reflux disease
  6. PRAVASTATIN [Concomitant]
     Active Substance: PRAVASTATIN
     Indication: Blood cholesterol
  7. ISOSORBIDE MONONITRATE [Concomitant]
     Active Substance: ISOSORBIDE MONONITRATE
  8. TELMISARTAN [Concomitant]
     Active Substance: TELMISARTAN
  9. FLECAINIDE [Concomitant]
     Active Substance: FLECAINIDE
  10. CLARITIN [Concomitant]
     Active Substance: LORATADINE
  11. PEPCID AC [Concomitant]
     Active Substance: FAMOTIDINE
  12. POTASSIUM [Concomitant]
     Active Substance: POTASSIUM
  13. SINGULAIR [Concomitant]
     Active Substance: MONTELUKAST SODIUM

REACTIONS (6)
  - Back pain [Not Recovered/Not Resolved]
  - Arthritis [Recovering/Resolving]
  - Gastrointestinal disorder [Recovered/Resolved]
  - Abdominal distension [Recovered/Resolved]
  - Bowel movement irregularity [Recovered/Resolved]
  - Drug ineffective [Unknown]

NARRATIVE: CASE EVENT DATE: 20240124
